FAERS Safety Report 4484649-6 (Version None)
Quarter: 2004Q3

REPORT INFORMATION
  Report Type: 
  Country: None (occurrence: None)
  Receive Date: 20040921
  Receipt Date: 20031113
  Transmission Date: 20050211
  Serious: Yes (Hospitalization, Other)
  Sender: FDA-Public Use
  Company Number: 163-20785-03110308

PATIENT
  Age: 44 Year
  Sex: Male

DRUGS (10)
  1. THALOMID [Suspect]
     Indication: GLIOBLASTOMA MULTIFORME
     Dosage: 200 MG, DAILY, ORAL; 30 MG, DAILY, ORAL;  200 MG, DAILY
     Route: 048
     Dates: start: 20031004, end: 20031017
  2. THALOMID [Suspect]
     Indication: GLIOBLASTOMA MULTIFORME
     Dosage: 200 MG, DAILY, ORAL; 30 MG, DAILY, ORAL;  200 MG, DAILY
     Route: 048
     Dates: start: 20031018, end: 20031029
  3. THALOMID [Suspect]
     Indication: GLIOBLASTOMA MULTIFORME
     Dosage: 200 MG, DAILY, ORAL; 30 MG, DAILY, ORAL;  200 MG, DAILY
     Route: 048
     Dates: start: 20031105, end: 20031111
  4. TEMODAR [Suspect]
     Indication: GLIOBLASTOMA MULTIFORME
     Dosage: 285 MG, DAILY, ORAL
     Route: 048
     Dates: start: 20031004, end: 20031008
  5. CELEBREX [Suspect]
     Indication: GLIOBLASTOMA MULTIFORME
     Dosage: 400 MG, BID, ORAL
     Route: 048
     Dates: start: 20031004
  6. DEXAMETHASONE [Concomitant]
  7. LACTULOSE [Concomitant]
  8. MAALOX (MAALOX) [Concomitant]
  9. RESTORIL [Concomitant]
  10. PREVACID [Concomitant]

REACTIONS (19)
  - ACUTE PRERENAL FAILURE [None]
  - ALANINE AMINOTRANSFERASE INCREASED [None]
  - BLOOD GLUCOSE INCREASED [None]
  - BLOOD UREA INCREASED [None]
  - CONSTIPATION [None]
  - COUGH [None]
  - DIARRHOEA [None]
  - DYSPNOEA EXERTIONAL [None]
  - HAEMATOCRIT DECREASED [None]
  - HAEMOGLOBIN DECREASED [None]
  - NASAL CONGESTION [None]
  - NEUTROPENIA [None]
  - ORAL CANDIDIASIS [None]
  - PULMONARY EMBOLISM [None]
  - PYODERMA GANGRENOSUM [None]
  - RED BLOOD CELL COUNT DECREASED [None]
  - THROAT IRRITATION [None]
  - UPPER RESPIRATORY TRACT INFECTION [None]
  - WHITE BLOOD CELL COUNT DECREASED [None]
